FAERS Safety Report 4682721-9 (Version None)
Quarter: 2005Q2

REPORT INFORMATION
  Report Type: 
  Country: None (occurrence: None)
  Receive Date: 20050602
  Receipt Date: 20050420
  Transmission Date: 20051028
  Serious: No
  Sender: FDA-Public Use
  Company Number: USA050496195

PATIENT
  Age: 52 Year
  Sex: Male

DRUGS (3)
  1. CYMBALTA [Suspect]
     Indication: DEPRESSION
     Dosage: 60 MG
     Dates: start: 20030101
  2. SYNTHROID [Concomitant]
  3. CYTOMEL [Concomitant]

REACTIONS (4)
  - DRUG INEFFECTIVE [None]
  - FEELING ABNORMAL [None]
  - MYALGIA [None]
  - RASH [None]
